FAERS Safety Report 12200398 (Version 1)
Quarter: 2016Q1

REPORT INFORMATION
  Report Type: Spontaneous
  Country: US (occurrence: US)
  Receive Date: 20160322
  Receipt Date: 20160322
  Transmission Date: 20160526
  Serious: No
  Sender: FDA-Public Use
  Company Number: US-SEPTODONT-201502965

PATIENT
  Age: 58 Year
  Sex: Male

DRUGS (2)
  1. BENZOCAINE 20% [Concomitant]
     Indication: LOCAL ANAESTHESIA
     Route: 061
     Dates: start: 20150723, end: 20150723
  2. LIDOCAINE HYDROCHLORIDE 2% WITH EPINEPHRINE 1:100,000 INJECTION [Suspect]
     Active Substance: EPINEPHRINE\LIDOCAINE HYDROCHLORIDE
     Indication: LOCAL ANAESTHESIA
     Dosage: 3 CARPULES ADMINISTERED VIA LOCAL INFILTRATION.
     Route: 004
     Dates: start: 20150723, end: 20150723

REACTIONS (1)
  - Urticaria [Recovered/Resolved]

NARRATIVE: CASE EVENT DATE: 20150723
